FAERS Safety Report 18540038 (Version 1)
Quarter: 2020Q4

REPORT INFORMATION
  Report Type: Report from Study
  Country: US (occurrence: US)
  Receive Date: 20201124
  Receipt Date: 20201124
  Transmission Date: 20210114
  Serious: Yes (Other)
  Sender: FDA-Public Use
  Company Number: US-EISAI MEDICAL RESEARCH-EC-2020-084227

PATIENT
  Age: 14 Year
  Sex: Female
  Weight: 64.04 kg

DRUGS (3)
  1. EVEROLIMUS. [Suspect]
     Active Substance: EVEROLIMUS
     Indication: GLIOMA
     Route: 048
     Dates: start: 20200911, end: 20201103
  2. LENVATINIB [Suspect]
     Active Substance: LENVATINIB
     Route: 048
     Dates: start: 20200930, end: 20201103
  3. LENVATINIB [Suspect]
     Active Substance: LENVATINIB
     Indication: GLIOMA
     Route: 048
     Dates: start: 20200908, end: 20200929

REACTIONS (1)
  - Hypothyroidism [Recovering/Resolving]

NARRATIVE: CASE EVENT DATE: 20201111
